FAERS Safety Report 25525369 (Version 1)
Quarter: 2025Q3

REPORT INFORMATION
  Report Type: Spontaneous
  Country: CA (occurrence: CA)
  Receive Date: 20250707
  Receipt Date: 20250707
  Transmission Date: 20251021
  Serious: Yes (Life-Threatening, Other)
  Sender: MYLAN
  Company Number: CA-MYLANLABS-2025M1055448

PATIENT
  Age: 44 Year
  Sex: Female

DRUGS (100)
  1. ISOTRETINOIN [Suspect]
     Active Substance: ISOTRETINOIN
     Indication: Hidradenitis
  2. ISOTRETINOIN [Suspect]
     Active Substance: ISOTRETINOIN
     Route: 065
  3. ISOTRETINOIN [Suspect]
     Active Substance: ISOTRETINOIN
     Route: 065
  4. ISOTRETINOIN [Suspect]
     Active Substance: ISOTRETINOIN
  5. AMOXICILLIN AND CLAVULANATE POTASSIUM [Suspect]
     Active Substance: AMOXICILLIN\CLAVULANATE POTASSIUM
     Indication: Hidradenitis
  6. AMOXICILLIN AND CLAVULANATE POTASSIUM [Suspect]
     Active Substance: AMOXICILLIN\CLAVULANATE POTASSIUM
     Route: 065
  7. AMOXICILLIN AND CLAVULANATE POTASSIUM [Suspect]
     Active Substance: AMOXICILLIN\CLAVULANATE POTASSIUM
     Route: 065
  8. AMOXICILLIN AND CLAVULANATE POTASSIUM [Suspect]
     Active Substance: AMOXICILLIN\CLAVULANATE POTASSIUM
  9. CLINDAMYCIN [Suspect]
     Active Substance: CLINDAMYCIN
     Indication: Hidradenitis
  10. CLINDAMYCIN [Suspect]
     Active Substance: CLINDAMYCIN
     Route: 061
  11. CLINDAMYCIN [Suspect]
     Active Substance: CLINDAMYCIN
     Route: 061
  12. CLINDAMYCIN [Suspect]
     Active Substance: CLINDAMYCIN
  13. DAPSONE [Suspect]
     Active Substance: DAPSONE
     Indication: Hidradenitis
  14. DAPSONE [Suspect]
     Active Substance: DAPSONE
     Route: 061
  15. DAPSONE [Suspect]
     Active Substance: DAPSONE
     Route: 061
  16. DAPSONE [Suspect]
     Active Substance: DAPSONE
  17. DOXYCYCLINE [Suspect]
     Active Substance: DOXYCYCLINE
     Indication: Hidradenitis
  18. DOXYCYCLINE [Suspect]
     Active Substance: DOXYCYCLINE
     Route: 065
  19. DOXYCYCLINE [Suspect]
     Active Substance: DOXYCYCLINE
     Route: 065
  20. DOXYCYCLINE [Suspect]
     Active Substance: DOXYCYCLINE
  21. INVANZ [Suspect]
     Active Substance: ERTAPENEM SODIUM
     Indication: Hidradenitis
  22. INVANZ [Suspect]
     Active Substance: ERTAPENEM SODIUM
     Route: 042
  23. INVANZ [Suspect]
     Active Substance: ERTAPENEM SODIUM
     Route: 042
  24. INVANZ [Suspect]
     Active Substance: ERTAPENEM SODIUM
  25. METRONIDAZOLE [Suspect]
     Active Substance: METRONIDAZOLE
     Indication: Hidradenitis
  26. METRONIDAZOLE [Suspect]
     Active Substance: METRONIDAZOLE
     Route: 065
  27. METRONIDAZOLE [Suspect]
     Active Substance: METRONIDAZOLE
     Route: 065
  28. METRONIDAZOLE [Suspect]
     Active Substance: METRONIDAZOLE
  29. MINOCYCLINE [Suspect]
     Active Substance: MINOCYCLINE HYDROCHLORIDE
     Indication: Hidradenitis
  30. MINOCYCLINE [Suspect]
     Active Substance: MINOCYCLINE HYDROCHLORIDE
     Route: 065
  31. MINOCYCLINE [Suspect]
     Active Substance: MINOCYCLINE HYDROCHLORIDE
     Route: 065
  32. MINOCYCLINE [Suspect]
     Active Substance: MINOCYCLINE HYDROCHLORIDE
  33. MOXIFLOXACIN [Suspect]
     Active Substance: MOXIFLOXACIN
     Indication: Hidradenitis
  34. MOXIFLOXACIN [Suspect]
     Active Substance: MOXIFLOXACIN
     Route: 065
  35. MOXIFLOXACIN [Suspect]
     Active Substance: MOXIFLOXACIN
     Route: 065
  36. MOXIFLOXACIN [Suspect]
     Active Substance: MOXIFLOXACIN
  37. PREDNISONE [Suspect]
     Active Substance: PREDNISONE
     Indication: Hidradenitis
  38. PREDNISONE [Suspect]
     Active Substance: PREDNISONE
     Route: 065
  39. PREDNISONE [Suspect]
     Active Substance: PREDNISONE
     Route: 065
  40. PREDNISONE [Suspect]
     Active Substance: PREDNISONE
  41. RIFAMPIN [Suspect]
     Active Substance: RIFAMPIN
     Indication: Hidradenitis
  42. RIFAMPIN [Suspect]
     Active Substance: RIFAMPIN
  43. RIFAMPIN [Suspect]
     Active Substance: RIFAMPIN
     Route: 065
  44. RIFAMPIN [Suspect]
     Active Substance: RIFAMPIN
     Route: 065
  45. RIFAMPIN [Suspect]
     Active Substance: RIFAMPIN
  46. RIFAMPIN [Suspect]
     Active Substance: RIFAMPIN
  47. RIFAMPIN [Suspect]
     Active Substance: RIFAMPIN
     Route: 065
  48. RIFAMPIN [Suspect]
     Active Substance: RIFAMPIN
     Route: 065
  49. TETRACYCLINE [Suspect]
     Active Substance: TETRACYCLINE
     Indication: Hidradenitis
  50. TETRACYCLINE [Suspect]
     Active Substance: TETRACYCLINE
     Route: 065
  51. TETRACYCLINE [Suspect]
     Active Substance: TETRACYCLINE
     Route: 065
  52. TETRACYCLINE [Suspect]
     Active Substance: TETRACYCLINE
  53. TRIAMCINOLONE [Suspect]
     Active Substance: TRIAMCINOLONE
     Indication: Hidradenitis
  54. TRIAMCINOLONE [Suspect]
     Active Substance: TRIAMCINOLONE
  55. TRIAMCINOLONE [Suspect]
     Active Substance: TRIAMCINOLONE
     Route: 026
  56. TRIAMCINOLONE [Suspect]
     Active Substance: TRIAMCINOLONE
     Route: 026
  57. TRIAMCINOLONE [Suspect]
     Active Substance: TRIAMCINOLONE
  58. TRIAMCINOLONE [Suspect]
     Active Substance: TRIAMCINOLONE
  59. TRIAMCINOLONE [Suspect]
     Active Substance: TRIAMCINOLONE
     Route: 065
  60. TRIAMCINOLONE [Suspect]
     Active Substance: TRIAMCINOLONE
     Route: 065
  61. ZINC [Suspect]
     Active Substance: ZINC
     Indication: Hidradenitis
  62. ZINC [Suspect]
     Active Substance: ZINC
     Route: 065
  63. ZINC [Suspect]
     Active Substance: ZINC
     Route: 065
  64. ZINC [Suspect]
     Active Substance: ZINC
  65. ACZONE [Suspect]
     Active Substance: DAPSONE
     Indication: Hidradenitis
  66. ACZONE [Suspect]
     Active Substance: DAPSONE
     Route: 061
  67. ACZONE [Suspect]
     Active Substance: DAPSONE
     Route: 061
  68. ACZONE [Suspect]
     Active Substance: DAPSONE
  69. AMOXICILLIN [Suspect]
     Active Substance: AMOXICILLIN
     Indication: Hidradenitis
  70. AMOXICILLIN [Suspect]
     Active Substance: AMOXICILLIN
     Route: 065
  71. AMOXICILLIN [Suspect]
     Active Substance: AMOXICILLIN
     Route: 065
  72. AMOXICILLIN [Suspect]
     Active Substance: AMOXICILLIN
  73. AMOXICILLIN\CLAVULANATE POTASSIUM [Suspect]
     Active Substance: AMOXICILLIN\CLAVULANATE POTASSIUM
     Indication: Hidradenitis
  74. AMOXICILLIN\CLAVULANATE POTASSIUM [Suspect]
     Active Substance: AMOXICILLIN\CLAVULANATE POTASSIUM
     Route: 065
  75. AMOXICILLIN\CLAVULANATE POTASSIUM [Suspect]
     Active Substance: AMOXICILLIN\CLAVULANATE POTASSIUM
     Route: 065
  76. AMOXICILLIN\CLAVULANATE POTASSIUM [Suspect]
     Active Substance: AMOXICILLIN\CLAVULANATE POTASSIUM
  77. CLINDAMYCIN PHOSPHATE [Suspect]
     Active Substance: CLINDAMYCIN PHOSPHATE
     Indication: Hidradenitis
  78. CLINDAMYCIN PHOSPHATE [Suspect]
     Active Substance: CLINDAMYCIN PHOSPHATE
  79. CLINDAMYCIN PHOSPHATE [Suspect]
     Active Substance: CLINDAMYCIN PHOSPHATE
     Route: 061
  80. CLINDAMYCIN PHOSPHATE [Suspect]
     Active Substance: CLINDAMYCIN PHOSPHATE
     Route: 061
  81. CLINDAMYCIN PHOSPHATE [Suspect]
     Active Substance: CLINDAMYCIN PHOSPHATE
  82. CLINDAMYCIN PHOSPHATE [Suspect]
     Active Substance: CLINDAMYCIN PHOSPHATE
  83. CLINDAMYCIN PHOSPHATE [Suspect]
     Active Substance: CLINDAMYCIN PHOSPHATE
     Route: 065
  84. CLINDAMYCIN PHOSPHATE [Suspect]
     Active Substance: CLINDAMYCIN PHOSPHATE
     Route: 065
  85. ERTAPENEM [Suspect]
     Active Substance: ERTAPENEM
     Indication: Hidradenitis
  86. ERTAPENEM [Suspect]
     Active Substance: ERTAPENEM
     Route: 042
  87. ERTAPENEM [Suspect]
     Active Substance: ERTAPENEM
     Route: 042
  88. ERTAPENEM [Suspect]
     Active Substance: ERTAPENEM
  89. MINOCYCLINE HYDROCHLORIDE [Suspect]
     Active Substance: MINOCYCLINE HYDROCHLORIDE
     Indication: Hidradenitis
  90. MINOCYCLINE HYDROCHLORIDE [Suspect]
     Active Substance: MINOCYCLINE HYDROCHLORIDE
     Route: 065
  91. MINOCYCLINE HYDROCHLORIDE [Suspect]
     Active Substance: MINOCYCLINE HYDROCHLORIDE
     Route: 065
  92. MINOCYCLINE HYDROCHLORIDE [Suspect]
     Active Substance: MINOCYCLINE HYDROCHLORIDE
  93. NORITATE [Suspect]
     Active Substance: METRONIDAZOLE
     Indication: Hidradenitis
  94. NORITATE [Suspect]
     Active Substance: METRONIDAZOLE
  95. NORITATE [Suspect]
     Active Substance: METRONIDAZOLE
     Route: 061
  96. NORITATE [Suspect]
     Active Substance: METRONIDAZOLE
     Route: 061
  97. NORITATE [Suspect]
     Active Substance: METRONIDAZOLE
  98. NORITATE [Suspect]
     Active Substance: METRONIDAZOLE
  99. NORITATE [Suspect]
     Active Substance: METRONIDAZOLE
     Route: 065
  100. NORITATE [Suspect]
     Active Substance: METRONIDAZOLE
     Route: 065

REACTIONS (12)
  - Condition aggravated [Unknown]
  - Mobility decreased [Unknown]
  - Pain [Unknown]
  - Scar [Unknown]
  - Skin lesion [Unknown]
  - Skin odour abnormal [Unknown]
  - Wound secretion [Unknown]
  - Drug intolerance [Unknown]
  - Treatment failure [Unknown]
  - Drug ineffective [Unknown]
  - Hidradenitis [Unknown]
  - Suicidal ideation [Unknown]
